FAERS Safety Report 19299639 (Version 1)
Quarter: 2021Q2

REPORT INFORMATION
  Report Type: Spontaneous
  Country: US (occurrence: US)
  Receive Date: 20210524
  Receipt Date: 20210524
  Transmission Date: 20210717
  Serious: Yes (Hospitalization)
  Sender: FDA-Public Use
  Company Number: None

PATIENT
  Sex: Female

DRUGS (24)
  1. BACLOFEN. [Concomitant]
     Active Substance: BACLOFEN
  2. OMEGA?3 ACIDS [Concomitant]
     Active Substance: OMEGA-3 FATTY ACIDS
  3. VIIBRYD [Concomitant]
     Active Substance: VILAZODONE HYDROCHLORIDE
  4. PHENAZOPYRID [Concomitant]
  5. MELATONIN [Concomitant]
     Active Substance: MELATONIN
  6. GABAPENTIN. [Concomitant]
     Active Substance: GABAPENTIN
  7. CAPECITABINE. [Suspect]
     Active Substance: CAPECITABINE
     Indication: PRODUCT USED FOR UNKNOWN INDICATION
     Route: 048
     Dates: start: 20210422
  8. ROSUVASTATIN. [Concomitant]
     Active Substance: ROSUVASTATIN
  9. DANTROLENE. [Concomitant]
     Active Substance: DANTROLENE SODIUM
  10. SENNA [Concomitant]
     Active Substance: SENNA LEAF\SENNOSIDES\SENNOSIDES A AND B
  11. OXYCODONE [Concomitant]
     Active Substance: OXYCODONE
  12. SYMBICORT [Concomitant]
     Active Substance: BUDESONIDE\FORMOTEROL FUMARATE DIHYDRATE
  13. LOSARTAN POTASSIUM. [Concomitant]
     Active Substance: LOSARTAN POTASSIUM
  14. VITAMIN C [Concomitant]
     Active Substance: ASCORBIC ACID
  15. LINZESS [Concomitant]
     Active Substance: LINACLOTIDE
  16. DIAZEPAM. [Concomitant]
     Active Substance: DIAZEPAM
  17. MECLIZINE [Concomitant]
     Active Substance: MECLIZINE HYDROCHLORIDE
  18. TRAZODONE [Concomitant]
     Active Substance: TRAZODONE HYDROCHLORIDE
  19. MAGNESIUM DOCUSATE [Concomitant]
  20. VENLAFAXINE [Concomitant]
     Active Substance: VENLAFAXINE HYDROCHLORIDE
  21. OMEPRAZOLE. [Concomitant]
     Active Substance: OMEPRAZOLE
  22. FLUTICASONE. [Concomitant]
     Active Substance: FLUTICASONE
  23. ALBUTEROL. [Concomitant]
     Active Substance: ALBUTEROL
  24. SMZ/TMP DS [Concomitant]
     Active Substance: SULFAMETHOXAZOLE\TRIMETHOPRIM

REACTIONS (2)
  - Diarrhoea [None]
  - Infection [None]
